FAERS Safety Report 9554064 (Version 2)
Quarter: 2013Q3

REPORT INFORMATION
  Report Type: Spontaneous
  Country: DE (occurrence: DE)
  Receive Date: 20130925
  Receipt Date: 20130925
  Transmission Date: 20140515
  Serious: Yes (Congenital Anomaly)
  Sender: FDA-Public Use
  Company Number: DE-ELI_LILLY_AND_COMPANY-DE_020308303

PATIENT
  Sex: 0

DRUGS (1)
  1. HUMALOG [Suspect]
     Dosage: UNK, UNKNOWN
     Route: 064

REACTIONS (4)
  - Spina bifida [Unknown]
  - Ventricular septal defect [Unknown]
  - Truncus arteriosus persistent [Unknown]
  - Hydrocephalus [Unknown]
